FAERS Safety Report 4313304-8 (Version None)
Quarter: 2004Q1

REPORT INFORMATION
  Report Type: 
  Country: None (occurrence: None)
  Receive Date: 20040305
  Receipt Date: 20040305
  Transmission Date: 20041129
  Serious: Yes (Life-Threatening, Hospitalization)
  Sender: FDA-Public Use
  Company Number: None

PATIENT
  Age: 16 Year
  Sex: Female
  Weight: 64.8 kg

DRUGS (2)
  1. METHOREXATE 2.5 MG /TAB [Suspect]
     Indication: ACUTE LYMPHOCYTIC LEUKAEMIA
     Dosage: MAINTENANCE DOSE PO
     Route: 048
  2. 6MP (THIOGUANINE) 50 MG /TAB [Suspect]
     Dosage: MAINTENANCE DOSE PO
     Route: 048

REACTIONS (10)
  - ASPARTATE AMINOTRANSFERASE INCREASED [None]
  - COMA HEPATIC [None]
  - HEPATIC FAILURE [None]
  - HYPOTENSION [None]
  - LIVER FUNCTION TEST ABNORMAL [None]
  - NEUTROPENIA [None]
  - PYREXIA [None]
  - STOMATITIS [None]
  - UPPER RESPIRATORY TRACT INFECTION [None]
  - WHITE BLOOD CELL COUNT DECREASED [None]
